FAERS Safety Report 4751731-5 (Version None)
Quarter: 2005Q3

REPORT INFORMATION
  Report Type: 
  Country: None (occurrence: None)
  Receive Date: 20050824
  Receipt Date: 20050812
  Transmission Date: 20060218
  Serious: Yes (Death)
  Sender: FDA-Public Use
  Company Number: US-SANOFI-SYNTHELABO-A03200502500

PATIENT
  Sex: Male
  Weight: 83.44 kg

DRUGS (6)
  1. PLAVIX [Suspect]
     Indication: ANTICOAGULANT THERAPY
     Route: 048
     Dates: start: 20040101
  2. PRINIVIL [Concomitant]
     Dosage: UNK
     Route: 048
     Dates: start: 19950101
  3. TOPROL-XL [Concomitant]
     Dosage: UNK
     Route: 048
     Dates: start: 20010101
  4. ISOSORBIDE [Concomitant]
     Dosage: UNK
     Route: 048
     Dates: start: 20010101
  5. LASIX [Concomitant]
     Dosage: UNK
     Route: 048
     Dates: start: 20020101
  6. DIGOXIN [Concomitant]
     Dosage: UNK
     Route: 048
     Dates: start: 20010101

REACTIONS (3)
  - DRUG INEFFECTIVE [None]
  - ISCHAEMIC STROKE [None]
  - MYOCARDIAL INFARCTION [None]
